FAERS Safety Report 10678561 (Version 2)
Quarter: 2015Q1

REPORT INFORMATION
  Report Type: Spontaneous
  Country: US (occurrence: US)
  Receive Date: 20141229
  Receipt Date: 20150113
  Transmission Date: 20150720
  Serious: Yes (Other)
  Sender: FDA-Public Use
  Company Number: US-SA-2014SA177759

PATIENT
  Age: 29 Year
  Sex: Female
  Weight: 58.97 kg

DRUGS (7)
  1. ALLEGRA [Suspect]
     Active Substance: FEXOFENADINE HYDROCHLORIDE
     Indication: UPPER-AIRWAY COUGH SYNDROME
     Dosage: PRODUCT START: 1.5 YEARS AGO
     Route: 048
     Dates: start: 20131201, end: 20141116
  2. SALINE [Concomitant]
     Active Substance: SODIUM CHLORIDE
     Indication: UPPER-AIRWAY COUGH SYNDROME
     Dates: start: 2013
  3. FLUTICASONE PROPIONATE. [Concomitant]
     Active Substance: FLUTICASONE PROPIONATE
     Indication: UPPER-AIRWAY COUGH SYNDROME
     Dates: start: 2013
  4. DEXILANT [Concomitant]
     Active Substance: DEXLANSOPRAZOLE
     Indication: OESOPHAGEAL ACHALASIA
     Dates: start: 2011
  5. FLUTICASONE PROPIONATE. [Concomitant]
     Active Substance: FLUTICASONE PROPIONATE
     Indication: RHINITIS
     Dates: start: 2013
  6. DEXILANT [Concomitant]
     Active Substance: DEXLANSOPRAZOLE
     Indication: GASTROOESOPHAGEAL REFLUX DISEASE
     Dates: start: 2011
  7. SALINE [Concomitant]
     Active Substance: SODIUM CHLORIDE
     Indication: RHINITIS
     Dates: start: 2013

REACTIONS (2)
  - Dysphagia [Recovered/Resolved]
  - Oesophageal achalasia [Not Recovered/Not Resolved]

NARRATIVE: CASE EVENT DATE: 20141117
